FAERS Safety Report 5958892-0 (Version None)
Quarter: 2008Q4

REPORT INFORMATION
  Report Type: 
  Country: None (occurrence: None)
  Receive Date: 20081118
  Receipt Date: 20081103
  Transmission Date: 20090506
  Serious: Yes (Life-Threatening, Hospitalization)
  Sender: FDA-Public Use
  Company Number: 2008S1019710

PATIENT
  Age: 52 Year
  Sex: Male

DRUGS (7)
  1. CARVEDILOL [Suspect]
     Dosage: 6.23 MG; TWICE A DAY;
  2. SPIRONOLACTONE [Suspect]
     Dosage: 25 MG; 3 TIMES PER WEEK;
  3. HYDROCHLOROTHIAZIDE [Suspect]
     Dosage: 80 MG; DAILY;
  4. LISINOPRIL [Suspect]
     Dosage: 20 MG; DAILY;
  5. DEXAMETHASONE 0.5MG TAB [Suspect]
     Dosage: 5 MG; TWICE A DAY;
  6. LIDOCAINE [Suspect]
     Indication: ORAL PAIN
  7. IBUPROFEN TABLETS [Suspect]
     Indication: HEADACHE
     Dosage: 800 MG;

REACTIONS (6)
  - COMA [None]
  - EYE DISORDER [None]
  - GINGIVAL DISORDER [None]
  - SEPSIS [None]
  - TOXIC EPIDERMAL NECROLYSIS [None]
  - VISUAL ACUITY REDUCED [None]
